FAERS Safety Report 10542790 (Version 1)
Quarter: 2014Q4

REPORT INFORMATION
  Report Type: Spontaneous
  Country: US (occurrence: None)
  Receive Date: 20141010
  Receipt Date: 20141010
  Transmission Date: 20150529
  Serious: Yes (Other)
  Sender: FDA-Public Use
  Company Number: 163-POMAL-14074292

PATIENT
  Age: 36 Year
  Sex: Female
  Weight: 72 kg

DRUGS (6)
  1. POMALYST [Suspect]
     Active Substance: POMALIDOMIDE
     Indication: PLASMA CELL MYELOMA
     Dosage: 21 IN 21 D
     Route: 048
     Dates: start: 20140623
  2. FLUCONAZOLE. [Concomitant]
     Active Substance: FLUCONAZOLE
  3. PANTOPRAZOLE SODIUM [Concomitant]
     Active Substance: PANTOPRAZOLE SODIUM
  4. TERCONAZOLE. [Concomitant]
     Active Substance: TERCONAZOLE
  5. LORAZEPAM. [Concomitant]
     Active Substance: LORAZEPAM
  6. OXYCODONE HCL (OXYCODONE HYDROCHLORIDE) [Concomitant]

REACTIONS (1)
  - Kidney infection [None]

NARRATIVE: CASE EVENT DATE: 2014
